FAERS Safety Report 25789637 (Version 2)
Quarter: 2025Q4

REPORT INFORMATION
  Report Type: Report from Study
  Country: US (occurrence: US)
  Receive Date: 20250911
  Receipt Date: 20251106
  Transmission Date: 20260118
  Serious: Yes (Other)
  Sender: ALEXION PHARMACEUTICALS
  Company Number: US-AstraZeneca-CH-00945726A

PATIENT
  Sex: Female

DRUGS (2)
  1. DAPAGLIFLOZIN [Suspect]
     Active Substance: DAPAGLIFLOZIN
     Route: 065
  2. ESOMEPRAZOLE [Suspect]
     Active Substance: ESOMEPRAZOLE
     Route: 065

REACTIONS (11)
  - Colitis [Unknown]
  - Barrett^s oesophagus [Unknown]
  - Hypothyroidism [Unknown]
  - Major depression [Unknown]
  - Deep vein thrombosis [Unknown]
  - Helicobacter infection [Unknown]
  - Generalised anxiety disorder [Unknown]
  - Chronic obstructive pulmonary disease [Unknown]
  - Obstructive sleep apnoea syndrome [Unknown]
  - Type 2 diabetes mellitus [Unknown]
  - Obesity [Unknown]
